FAERS Safety Report 6029584-7 (Version None)
Quarter: 2009Q1

REPORT INFORMATION
  Report Type: 
  Country: None (occurrence: None)
  Receive Date: 20090107
  Receipt Date: 20081230
  Transmission Date: 20090719
  Serious: Yes (Other)
  Sender: FDA-Public Use
  Company Number: US-ASTRAZENECA-2008UW28953

PATIENT
  Age: 45 Year
  Sex: Male
  Weight: 77.1 kg

DRUGS (6)
  1. NEXIUM [Suspect]
     Indication: OESOPHAGEAL ULCER
     Route: 048
     Dates: start: 20030101
  2. AVANDAMET [Concomitant]
  3. JANUVIA [Concomitant]
  4. ACARBOSE [Concomitant]
  5. LIPITOR [Concomitant]
  6. LANTACE [Concomitant]

REACTIONS (4)
  - DRUG INEFFECTIVE [None]
  - ERUCTATION [None]
  - OESOPHAGEAL PAIN [None]
  - PROSTATIC DISORDER [None]
